FAERS Safety Report 21898679 (Version 1)
Quarter: 2023Q1

REPORT INFORMATION
  Report Type: Spontaneous
  Country: CA (occurrence: None)
  Receive Date: 20230122
  Receipt Date: 20230122
  Transmission Date: 20230417
  Serious: No
  Sender: FDA-Public Use
  Company Number: None

PATIENT
  Age: 48 Year
  Sex: Female

DRUGS (2)
  1. ICY HOT MEDICATED NO MESS APPLICATOR [Suspect]
     Active Substance: MENTHOL
     Indication: Myalgia
     Dosage: OTHER FREQUENCY : 3 TO 4 X DAILY;?
     Route: 061
     Dates: start: 20230119, end: 20230119
  2. ICY HOT MEDICATED NO MESS APPLICATOR [Suspect]
     Active Substance: MENTHOL
     Indication: Neck pain

REACTIONS (4)
  - Application site pain [None]
  - Rash erythematous [None]
  - Skin exfoliation [None]
  - Sensitive skin [None]

NARRATIVE: CASE EVENT DATE: 20230119
